FAERS Safety Report 8116065-X (Version None)
Quarter: 2012Q1

REPORT INFORMATION
  Report Type: 
  Country: None (occurrence: None)
  Receive Date: 20120206
  Receipt Date: 20120131
  Transmission Date: 20120608
  Serious: Yes (Other)
  Sender: FDA-Public Use
  Company Number: US-PFIZER INC-2012027822

PATIENT
  Sex: Female

DRUGS (7)
  1. ATIVAN [Concomitant]
     Dosage: UNK
  2. GEODON [Suspect]
     Dosage: 60 MG, 2X/DAY
  3. LAMICTAL [Concomitant]
     Dosage: UNK
  4. WELLBUTRIN SR [Concomitant]
     Dosage: UNK
  5. TRAZODONE [Concomitant]
     Dosage: UNK
  6. DILANTIN [Concomitant]
     Dosage: UNK
  7. GABITRIL [Concomitant]
     Dosage: UNK

REACTIONS (1)
  - BIPOLAR DISORDER [None]
